FAERS Safety Report 10269656 (Version 2)
Quarter: 2014Q3

REPORT INFORMATION
  Report Type: Report from Study
  Country: DE (occurrence: DE)
  Receive Date: 20140701
  Receipt Date: 20140701
  Transmission Date: 20150326
  Serious: Yes (Life-Threatening, Hospitalization, Other)
  Sender: FDA-Public Use
  Company Number: DE-ROCHE-738798

PATIENT
  Age: 56 Year
  Sex: Female
  Weight: 86 kg

DRUGS (1)
  1. RITUXIMAB [Suspect]
     Active Substance: RITUXIMAB
     Indication: B-CELL LYMPHOMA
     Dosage: MAINTENANCE, LAST DOSE PRIOR TO EVENTS GIVEN ON 28 MAY 2010
     Route: 042

REACTIONS (8)
  - Pain [Recovered/Resolved]
  - Viral infection [Recovered/Resolved]
  - Thrombocytopenia [Recovered/Resolved]
  - Bacterial infection [Recovering/Resolving]
  - Dyspnoea [Not Recovered/Not Resolved]
  - Hypokalaemia [Recovering/Resolving]
  - Neutropenia [Not Recovered/Not Resolved]
  - Leukopenia [Recovered/Resolved]

NARRATIVE: CASE EVENT DATE: 20100717
